FAERS Safety Report 23453989 (Version 1)
Quarter: 2024Q1

REPORT INFORMATION
  Report Type: Report from Study
  Country: US (occurrence: US)
  Receive Date: 20240130
  Receipt Date: 20240130
  Transmission Date: 20240410
  Serious: Yes (Other)
  Sender: FDA-Public Use
  Company Number: US-ABBVIE-5599780

PATIENT
  Sex: Male

DRUGS (1)
  1. SKYRIZI [Suspect]
     Active Substance: RISANKIZUMAB-RZAA
     Indication: Product used for unknown indication
     Route: 058
     Dates: start: 20230519

REACTIONS (5)
  - Eye disorder [Unknown]
  - Blindness [Unknown]
  - Cataract [Unknown]
  - Sleep deficit [Recovering/Resolving]
  - Retinal detachment [Unknown]
